FAERS Safety Report 6073913-5 (Version None)
Quarter: 2009Q1

REPORT INFORMATION
  Report Type: 
  Country: None (occurrence: None)
  Receive Date: 20090211
  Receipt Date: 20090209
  Transmission Date: 20090719
  Serious: Yes (Death, Hospitalization)
  Sender: FDA-Public Use
  Company Number: ES-MERCK-0902ESP00018

PATIENT
  Age: 52 Year
  Sex: Male

DRUGS (13)
  1. ISENTRESS [Suspect]
     Indication: HIV INFECTION
     Route: 048
     Dates: start: 20081128, end: 20081205
  2. EPIVIR [Concomitant]
     Indication: HIV INFECTION
     Route: 065
     Dates: start: 20081128
  3. NORVIR [Concomitant]
     Indication: HIV INFECTION
     Route: 048
     Dates: start: 20081128
  4. [THERAPY UNSPECIFIED] [Concomitant]
     Indication: NOCARDIOSIS
     Route: 065
  5. VENLAFAXINE HYDROCHLORIDE [Concomitant]
     Indication: PSYCHOTIC DISORDER
     Route: 065
  6. DACORTIN [Concomitant]
     Route: 065
  7. FOSAMAX [Concomitant]
     Route: 048
  8. CLORAZEPATE DIPOTASSIUM [Concomitant]
     Route: 065
  9. DISTRANEURIN [Concomitant]
     Route: 065
  10. DIURETIC (UNSPECIFIED) [Concomitant]
     Route: 065
  11. PREZISTA [Concomitant]
     Indication: HIV INFECTION
     Route: 048
     Dates: start: 20081128
  12. LEDERFOLIN (LEUCOVORIN CALCIUM) [Concomitant]
     Route: 065
  13. [THERAPY UNSPECIFIED] [Concomitant]
     Indication: PROPHYLAXIS OF NAUSEA AND VOMITING
     Route: 065

REACTIONS (7)
  - ABNORMAL DREAMS [None]
  - ANXIETY [None]
  - INSOMNIA [None]
  - NIGHTMARE [None]
  - PSYCHOTIC DISORDER [None]
  - SLEEP TERROR [None]
  - SUDDEN DEATH [None]
